FAERS Safety Report 4575612-5 (Version None)
Quarter: 2005Q1

REPORT INFORMATION
  Report Type: 
  Country: None (occurrence: None)
  Receive Date: 20050209
  Receipt Date: 20050128
  Transmission Date: 20050727
  Serious: Yes (Hospitalization)
  Sender: FDA-Public Use
  Company Number: US-GLAXOSMITHKLINE-A0542854A

PATIENT
  Age: 75 Year
  Sex: Female

DRUGS (7)
  1. ADVAIR DISKUS 100/50 [Suspect]
     Indication: ASTHMA
     Dosage: 1PUFF TWICE PER DAY
     Route: 055
     Dates: start: 20010101
  2. SINGULAIR [Concomitant]
  3. DITROPAN XL [Concomitant]
  4. SYNTHROID [Concomitant]
  5. ACIPHEX [Concomitant]
  6. PAXIL [Concomitant]
  7. BUSPAR [Concomitant]

REACTIONS (5)
  - ACUTE SINUSITIS [None]
  - BACK PAIN [None]
  - CANDIDIASIS [None]
  - KIDNEY INFECTION [None]
  - PHARYNGITIS [None]
